FAERS Safety Report 9280420 (Version 1)
Quarter: 2013Q2

REPORT INFORMATION
  Report Type: Spontaneous
  Country: GB (occurrence: GB)
  Receive Date: 20130509
  Receipt Date: 20130509
  Transmission Date: 20140414
  Serious: Yes (Other)
  Sender: FDA-Public Use
  Company Number: PHHY2013GB043334

PATIENT
  Age: 52 Year
  Sex: Male
  Weight: 72.57 kg

DRUGS (2)
  1. BISOPROLOL FUMARATE [Suspect]
     Dosage: 5 MG, UNK
     Route: 048
     Dates: start: 20130410, end: 20130410
  2. WARFARIN [Concomitant]

REACTIONS (1)
  - Heart rate increased [Not Recovered/Not Resolved]
